FAERS Safety Report 11643822 (Version 1)
Quarter: 2015Q4

REPORT INFORMATION
  Report Type: Spontaneous
  Country: ZA (occurrence: ZA)
  Receive Date: 20151020
  Receipt Date: 20151020
  Transmission Date: 20160304
  Serious: Yes (Disabling, Other)
  Sender: FDA-Public Use
  Company Number: ZA-JNJFOC-20151013893

PATIENT
  Sex: Female

DRUGS (19)
  1. NUZAK [Concomitant]
     Indication: BIPOLAR DISORDER
     Dosage: MORNING AND AS NEEDED (MITTE)
     Route: 065
  2. VITAMIN C [Concomitant]
     Active Substance: ASCORBIC ACID
     Indication: MINERAL SUPPLEMENTATION
     Dosage: STOP AFTER 6 MONTHS
     Route: 048
  3. CHELA FER [Concomitant]
     Indication: MINERAL SUPPLEMENTATION
     Dosage: STOP AFTER 6 MONTHS
     Route: 048
  4. SALAZOPYRIN EN [Concomitant]
     Active Substance: SULFASALAZINE
     Indication: SYSTEMIC LUPUS ERYTHEMATOSUS
     Route: 048
  5. ACETAMINOPHEN\TRAMADOL HYDROCHLORIDE [Suspect]
     Active Substance: ACETAMINOPHEN\TRAMADOL HYDROCHLORIDE
     Indication: PAIN
     Dosage: TWICE AS NECESSARY
     Route: 048
  6. DIOTROXIN [Concomitant]
     Indication: HYPOTHYROIDISM
     Dosage: MORNING
     Route: 048
  7. STEMETIL [Concomitant]
     Active Substance: PROCHLORPERAZINE MALEATE
     Indication: NAUSEA
     Route: 048
  8. SALAZOPYRIN EN [Concomitant]
     Active Substance: SULFASALAZINE
     Indication: CUTANEOUS LUPUS ERYTHEMATOSUS
     Route: 048
  9. ARCOXIA [Concomitant]
     Active Substance: ETORICOXIB
     Indication: SYSTEMIC LUPUS ERYTHEMATOSUS
     Route: 048
  10. VITAMIN B12 [Concomitant]
     Active Substance: CYANOCOBALAMIN
     Indication: NAUSEA
     Route: 030
  11. PANADO [Concomitant]
     Active Substance: ACETAMINOPHEN
     Indication: NAUSEA
     Route: 048
  12. NORMISON [Concomitant]
     Active Substance: TEMAZEPAM
     Indication: SLEEP DISORDER THERAPY
     Dosage: NIGHT
     Route: 048
  13. METHOTREXATE [Concomitant]
     Active Substance: METHOTREXATE
     Indication: SYSTEMIC LUPUS ERYTHEMATOSUS
     Route: 048
  14. ARCOXIA [Concomitant]
     Active Substance: ETORICOXIB
     Indication: CUTANEOUS LUPUS ERYTHEMATOSUS
     Route: 048
  15. METHOTREXATE [Concomitant]
     Active Substance: METHOTREXATE
     Indication: CUTANEOUS LUPUS ERYTHEMATOSUS
     Route: 048
  16. FOLIC ACID. [Concomitant]
     Active Substance: FOLIC ACID
     Indication: NAUSEA
     Route: 048
  17. SALAZOPYRIN EN [Concomitant]
     Active Substance: SULFASALAZINE
     Indication: ARTHRITIS
     Route: 048
  18. ARCOXIA [Concomitant]
     Active Substance: ETORICOXIB
     Indication: PAIN
     Route: 048
  19. PANADO [Concomitant]
     Active Substance: ACETAMINOPHEN
     Indication: PAIN
     Route: 048

REACTIONS (1)
  - Paralysis [Unknown]
